FAERS Safety Report 4294343-2 (Version None)
Quarter: 2004Q1

REPORT INFORMATION
  Report Type: 
  Country: None (occurrence: None)
  Receive Date: 20040212
  Receipt Date: 20040212
  Transmission Date: 20041129
  Serious: No
  Sender: FDA-Public Use
  Company Number: None

PATIENT
  Sex: Male

DRUGS (5)
  1. DEPAKENE [Suspect]
     Indication: AFFECTIVE DISORDER
     Dosage: 250MG PO BID
     Route: 048
     Dates: start: 20031114
  2. DEPAKENE [Suspect]
     Indication: AFFECTIVE DISORDER
     Dosage: 250MG PO BID
     Route: 048
     Dates: start: 20031115
  3. RISPERDAL [Concomitant]
  4. INDERAL LA [Concomitant]
  5. SALINE NASAL SPRAY [Concomitant]

REACTIONS (3)
  - BURNING SENSATION [None]
  - FLUSHING [None]
  - RASH PRURITIC [None]
